FAERS Safety Report 23965533 (Version 1)
Quarter: 2024Q2

REPORT INFORMATION
  Report Type: Spontaneous
  Country: ES (occurrence: ES)
  Receive Date: 20240612
  Receipt Date: 20240612
  Transmission Date: 20240716
  Serious: Yes (Other)
  Sender: FDA-Public Use
  Company Number: ES-Merck Healthcare KGaA-2024031162

PATIENT
  Age: 8 Year
  Sex: Female

DRUGS (2)
  1. SAIZEN [Suspect]
     Active Substance: SOMATROPIN
     Indication: Short stature
     Dosage: DOSE: 0.55 (UNIT NOT REPORTED)
     Dates: start: 20200703
  2. SAIZEN [Suspect]
     Active Substance: SOMATROPIN
     Indication: Small for dates baby

REACTIONS (2)
  - Papilloedema [Unknown]
  - Vitiligo [Unknown]

NARRATIVE: CASE EVENT DATE: 20210601
